FAERS Safety Report 11160915 (Version 1)
Quarter: 2015Q2

REPORT INFORMATION
  Report Type: Spontaneous
  Country: US (occurrence: US)
  Receive Date: 20150604
  Receipt Date: 20150604
  Transmission Date: 20150821
  Serious: No
  Sender: FDA-Public Use
  Company Number: US-SA-2014SA071347

PATIENT
  Age: 63 Year
  Sex: Female

DRUGS (3)
  1. NOVOLOG [Concomitant]
     Active Substance: INSULIN ASPART
  2. LUCENTIS [Concomitant]
     Active Substance: RANIBIZUMAB
     Indication: ILL-DEFINED DISORDER
  3. LANTUS SOLOSTAR [Suspect]
     Active Substance: INSULIN GLARGINE
     Indication: TYPE 2 DIABETES MELLITUS
     Dosage: DOSE:40 UNIT(S)
     Route: 058
     Dates: start: 201306

REACTIONS (4)
  - Injection site extravasation [Unknown]
  - Injection site haemorrhage [Unknown]
  - Drug dose omission [Unknown]
  - Injection site pain [Unknown]
